FAERS Safety Report 24681540 (Version 1)
Quarter: 2024Q4

REPORT INFORMATION
  Report Type: Spontaneous
  Country: MX (occurrence: MX)
  Receive Date: 20241130
  Receipt Date: 20241130
  Transmission Date: 20250114
  Serious: Yes (Other)
  Sender: ROCHE
  Company Number: MX-ROCHE-10000145116

PATIENT
  Age: 78 Year
  Sex: Male

DRUGS (1)
  1. VABYSMO [Suspect]
     Active Substance: FARICIMAB-SVOA
     Indication: Diabetic retinal oedema
     Dosage: 5 DOSES
     Route: 050
     Dates: start: 20240514, end: 20240827

REACTIONS (1)
  - Vitreous disorder [Recovering/Resolving]

NARRATIVE: CASE EVENT DATE: 20241011
